FAERS Safety Report 9343200 (Version 1)
Quarter: 2013Q2

REPORT INFORMATION
  Report Type: Spontaneous
  Country: FR (occurrence: FR)
  Receive Date: 20130611
  Receipt Date: 20130611
  Transmission Date: 20140414
  Serious: Yes (Hospitalization)
  Sender: FDA-Public Use
  Company Number: FR-ASTRAZENECA-2013SE40958

PATIENT
  Age: 23941 Day
  Sex: Male

DRUGS (9)
  1. INEXIUM [Suspect]
     Route: 048
  2. CELLCEPT [Suspect]
     Indication: LIVER TRANSPLANT
     Route: 048
     Dates: start: 2005
  3. ADVAGRAF [Suspect]
     Indication: LIVER TRANSPLANT
     Route: 048
     Dates: start: 2005
  4. ADVAGRAF [Suspect]
     Indication: LIVER TRANSPLANT
     Dates: start: 20130321
  5. KARDEGIC [Suspect]
     Route: 048
  6. COVERSYL [Suspect]
     Route: 048
  7. EZETROL [Suspect]
     Route: 048
  8. UNSPECIFIED [Suspect]
     Indication: CHOLESTASIS
     Route: 048
  9. FLAGYL [Concomitant]
     Dates: start: 20130316, end: 20130318

REACTIONS (2)
  - Intestinal ulcer [Unknown]
  - Enterocolitis haemorrhagic [Recovering/Resolving]
